FAERS Safety Report 15355648 (Version 2)
Quarter: 2023Q1

REPORT INFORMATION
  Report Type: Spontaneous
  Country: AU (occurrence: AU)
  Receive Date: 20180906
  Receipt Date: 20230307
  Transmission Date: 20230418
  Serious: Yes (Death, Other)
  Sender: FDA-Public Use
  Company Number: AU-BAYER-2018-162564

PATIENT
  Age: 82 Year
  Sex: Female
  Weight: 63 kg

DRUGS (8)
  1. GADOBUTROL [Suspect]
     Active Substance: GADOBUTROL
     Indication: Magnetic resonance imaging
     Dosage: 7.5 ML, ONCE
     Dates: start: 20170324, end: 20170324
  2. GADOBUTROL [Suspect]
     Active Substance: GADOBUTROL
     Indication: Abdominal pain upper
  3. MICARDIS [Suspect]
     Active Substance: TELMISARTAN
     Indication: Product used for unknown indication
     Dosage: 80 MG, UNK
  4. LERCANIDIPINE HYDROCHLORIDE [Suspect]
     Active Substance: LERCANIDIPINE HYDROCHLORIDE
     Indication: Product used for unknown indication
     Dosage: 10 MG, UNK
     Dates: start: 20170324
  5. CALCIUM CARBONATE [Concomitant]
     Active Substance: CALCIUM CARBONATE
  6. VITAMIN D NOS [Concomitant]
     Active Substance: VITAMIN D NOS
  7. ACETAMINOPHEN\CODEINE PHOSPHATE [Concomitant]
     Active Substance: ACETAMINOPHEN\CODEINE PHOSPHATE
  8. ATENOLOL [Concomitant]
     Active Substance: ATENOLOL
     Dosage: 50 MG, UNK

REACTIONS (22)
  - Contrast media reaction [Fatal]
  - Pulmonary oedema [Fatal]
  - Wheezing [Fatal]
  - Dyspnoea [Fatal]
  - Rales [Fatal]
  - Cyanosis [Fatal]
  - Multiple organ dysfunction syndrome [Fatal]
  - Cardiac arrest [Fatal]
  - Acute kidney injury [Fatal]
  - Hyperkalaemia [Fatal]
  - Lactic acidosis [Fatal]
  - Anuria [Fatal]
  - Peripheral ischaemia [Fatal]
  - Peripheral artery thrombosis [Fatal]
  - Pulse absent [Fatal]
  - Pallor [Fatal]
  - Nausea [Fatal]
  - Bradycardia [Fatal]
  - Presyncope [Fatal]
  - Peripheral circulatory failure [Fatal]
  - Hypotension [Fatal]
  - Somnolence [Fatal]

NARRATIVE: CASE EVENT DATE: 20170324
